FAERS Safety Report 18234864 (Version 1)
Quarter: 2020Q3

REPORT INFORMATION
  Report Type: Spontaneous
  Country: FR (occurrence: FR)
  Receive Date: 20200904
  Receipt Date: 20200904
  Transmission Date: 20201103
  Serious: Yes (Hospitalization)
  Sender: FDA-Public Use
  Company Number: NVSC2020FR240855

PATIENT
  Sex: Male

DRUGS (5)
  1. TIAPRIDAL [Suspect]
     Active Substance: TIAPRIDE HYDROCHLORIDE
     Indication: WRONG PATIENT RECEIVED PRODUCT
     Dosage: 1 DF
     Route: 048
     Dates: start: 20200603, end: 20200603
  2. TEGRETOL [Suspect]
     Active Substance: CARBAMAZEPINE
     Indication: WRONG PATIENT RECEIVED PRODUCT
     Dosage: 0.5 DF
     Route: 048
     Dates: start: 20200603, end: 20200603
  3. SULFARLEM S 25 [Suspect]
     Active Substance: ANETHOLTRITHION
     Indication: WRONG PATIENT RECEIVED PRODUCT
     Dosage: 1 DF
     Route: 048
     Dates: start: 20200603, end: 20200603
  4. NEULEPTIL [Suspect]
     Active Substance: PERICIAZINE
     Indication: WRONG PATIENT RECEIVED PRODUCT
     Dosage: 1 DF
     Route: 048
     Dates: start: 20200603, end: 20200603
  5. CLOPIXOL [Suspect]
     Active Substance: ZUCLOPENTHIXOL
     Indication: WRONG PATIENT RECEIVED PRODUCT
     Dosage: 1 DF
     Route: 048
     Dates: start: 20200603, end: 20200603

REACTIONS (5)
  - Asthenia [Recovered/Resolved]
  - Hypotonia [Recovered/Resolved]
  - Somnolence [Recovered/Resolved]
  - Product administration error [Recovered/Resolved]
  - Wrong patient received product [Recovered/Resolved]

NARRATIVE: CASE EVENT DATE: 20200603
